FAERS Safety Report 19892382 (Version 1)
Quarter: 2021Q3

REPORT INFORMATION
  Report Type: Report from Study
  Country: US (occurrence: US)
  Receive Date: 20210929
  Receipt Date: 20210929
  Transmission Date: 20211014
  Serious: Yes (Other)
  Sender: FDA-Public Use
  Company Number: US-SUN PHARMACEUTICAL INDUSTRIES LTD-2021R1-312604

PATIENT

DRUGS (1)
  1. NORADRENALINE [Suspect]
     Active Substance: NOREPINEPHRINE
     Indication: HEPATORENAL SYNDROME
     Dosage: 5 MICROGRAM PER MINUTE
     Route: 065

REACTIONS (2)
  - Myocardial ischaemia [Unknown]
  - Ventricular tachycardia [Unknown]
